FAERS Safety Report 9355147 (Version 1)
Quarter: 2013Q2

REPORT INFORMATION
  Report Type: Report from Study
  Country: US (occurrence: US)
  Receive Date: 20130619
  Receipt Date: 20130619
  Transmission Date: 20140414
  Serious: Yes (Other)
  Sender: FDA-Public Use
  Company Number: PHEH2013US010984

PATIENT
  Age: 49 Year
  Sex: Male
  Weight: 135.4 kg

DRUGS (19)
  1. GLEEVEC [Suspect]
     Indication: CHRONIC MYELOID LEUKAEMIA
     Dosage: 1 DF, DAILY
     Route: 048
     Dates: start: 20130418
  2. DEPO TESTOSTERONE [Concomitant]
     Indication: HYPOGONADISM MALE
     Dosage: 100 MG/ML, UNK
  3. DEPO TESTOSTERONE [Concomitant]
     Dosage: 2 ML (200 MG/ML), QMO
     Route: 030
  4. RITALIN [Concomitant]
     Dosage: 10 MG, UNK
  5. RITALIN [Concomitant]
     Dosage: 1 DF (20 MG), TID
     Route: 048
  6. WELLBUTRIN [Concomitant]
     Dosage: 100 MG, UNK
  7. ALLOPURINOL [Concomitant]
     Dosage: 100 MG, UNK
  8. ALLOPURINOL [Concomitant]
     Dosage: 1 DF (300 MG), DAILY
     Route: 048
  9. ALBUTEROL HFA [Concomitant]
     Indication: WHEEZING
     Dosage: UNK UKN (1-2 PUFFS), EVERY 4 HOURS
  10. WELLBUTRIN XL [Concomitant]
     Dosage: 3 DF, QD (EVERY MORNING)
     Route: 048
  11. PENLAC [Concomitant]
     Indication: NAIL DISORDER
     Dosage: UNK UKN, UNK (NIGHTLY)
     Route: 061
  12. FLEXERIL [Concomitant]
     Dosage: 1 DF, PRN
     Route: 048
  13. FLONASE [Concomitant]
     Indication: HYPERSENSITIVITY
     Dosage: UNK UKN (2 SPRAYS INTO EACH NOSTRIL), DAILY
     Route: 045
  14. CIALIS [Concomitant]
     Dosage: 1 DF, PRN
     Route: 048
  15. PROTEIN SUPPLEMENTS [Concomitant]
     Dosage: UNK UKN, UNK
  16. METFORMIN [Concomitant]
     Dosage: 1 DF, DAILY WITH BREAKFAST
     Route: 048
  17. VENTOLIN HFA [Concomitant]
     Indication: WHEEZING
     Dosage: UNK UKN (1-2 PUFFS), EVERY 4 HOURS
  18. TADALAFIL [Concomitant]
     Dosage: 1 DF, PRN
     Route: 048
  19. HYDREA [Concomitant]
     Dosage: UNK UKN, UNK

REACTIONS (10)
  - Diabetes mellitus inadequate control [Unknown]
  - Hypophagia [Unknown]
  - Pain [Recovering/Resolving]
  - Myalgia [Unknown]
  - Arthralgia [Unknown]
  - Nausea [Recovered/Resolved]
  - Vomiting [Recovered/Resolved]
  - Abdominal distension [Unknown]
  - Night sweats [Recovering/Resolving]
  - Cough [Recovering/Resolving]
